FAERS Safety Report 13078312 (Version 1)
Quarter: 2017Q1

REPORT INFORMATION
  Report Type: Spontaneous
  Country: US (occurrence: US)
  Receive Date: 20170102
  Receipt Date: 20170102
  Transmission Date: 20170428
  Serious: No
  Sender: FDA-Public Use
  Company Number: US-JNJFOC-20161220522

PATIENT
  Age: 33 Year
  Sex: Female
  Weight: 97.52 kg

DRUGS (2)
  1. PEPCID AC [Suspect]
     Active Substance: FAMOTIDINE
     Route: 048
  2. PEPCID AC [Suspect]
     Active Substance: FAMOTIDINE
     Indication: GASTROENTERITIS VIRAL
     Dosage: 1 TABLET;
     Route: 048
     Dates: start: 20161220

REACTIONS (4)
  - Chromaturia [Not Recovered/Not Resolved]
  - Exposure during pregnancy [Unknown]
  - Off label use [Not Recovered/Not Resolved]
  - Product use issue [Unknown]

NARRATIVE: CASE EVENT DATE: 20161220
